FAERS Safety Report 14790866 (Version 1)
Quarter: 2018Q2

REPORT INFORMATION
  Report Type: Spontaneous
  Country: HR (occurrence: HR)
  Receive Date: 20180423
  Receipt Date: 20180423
  Transmission Date: 20180711
  Serious: Yes (Life-Threatening, Hospitalization)
  Sender: FDA-Public Use
  Company Number: HR-JNJFOC-20180423881

PATIENT
  Age: 82 Year
  Sex: Female

DRUGS (7)
  1. PERINDOPRIL [Concomitant]
     Active Substance: PERINDOPRIL
     Indication: CARDIOMYOPATHY
     Route: 048
  2. IPRATROPIUM BROMIDE. [Concomitant]
     Active Substance: IPRATROPIUM BROMIDE
     Route: 048
     Dates: start: 201712, end: 20180304
  3. VASILIP [Concomitant]
     Active Substance: SIMVASTATIN
     Indication: HYPERLIPIDAEMIA
     Route: 065
     Dates: end: 20180304
  4. CONCOR COR [Concomitant]
     Active Substance: BISOPROLOL FUMARATE
     Indication: HYPERTENSION
     Route: 048
     Dates: start: 200909
  5. XARELTO [Suspect]
     Active Substance: RIVAROXABAN
     Indication: ATRIAL FIBRILLATION
     Route: 048
     Dates: start: 201712, end: 20180304
  6. RAMIPRIL. [Concomitant]
     Active Substance: RAMIPRIL
     Indication: CARDIOMYOPATHY
     Route: 048
     Dates: start: 201712, end: 20180304
  7. JANUMET [Concomitant]
     Active Substance: METFORMIN HYDROCHLORIDE\SITAGLIPTIN PHOSPHATE
     Indication: TYPE 2 DIABETES MELLITUS
     Route: 048

REACTIONS (7)
  - Dyspnoea [Recovered/Resolved with Sequelae]
  - Haemorrhagic anaemia [Recovered/Resolved with Sequelae]
  - Pallor [Recovered/Resolved with Sequelae]
  - Intestinal haemorrhage [Recovered/Resolved with Sequelae]
  - Rectal haemorrhage [Recovered/Resolved with Sequelae]
  - Cardiac failure [Recovered/Resolved with Sequelae]
  - Gastrointestinal vascular malformation haemorrhagic [Recovered/Resolved with Sequelae]

NARRATIVE: CASE EVENT DATE: 20180304
